FAERS Safety Report 6318157-4 (Version None)
Quarter: 2009Q3

REPORT INFORMATION
  Report Type: 
  Country: None (occurrence: None)
  Receive Date: 20090821
  Receipt Date: 20090814
  Transmission Date: 20100115
  Serious: Yes (Hospitalization)
  Sender: FDA-Public Use
  Company Number: A0802295A

PATIENT
  Sex: Male

DRUGS (1)
  1. ABACAVIR [Suspect]
     Indication: HIV INFECTION
     Route: 048

REACTIONS (4)
  - BLOOD PRESSURE DECREASED [None]
  - HYPERSENSITIVITY [None]
  - PYREXIA [None]
  - RENAL FAILURE [None]
